FAERS Safety Report 5120980-9 (Version None)
Quarter: 2006Q4

REPORT INFORMATION
  Report Type: 
  Country: None (occurrence: None)
  Receive Date: 20061005
  Receipt Date: 20060904
  Transmission Date: 20070319
  Serious: Yes (Disabling)
  Sender: FDA-Public Use
  Company Number: CN-BRISTOL-MYERS SQUIBB COMPANY-13497490

PATIENT
  Age: 66 Year
  Sex: Female

DRUGS (4)
  1. MEVALOTIN [Suspect]
     Indication: HYPERLIPIDAEMIA
     Route: 048
     Dates: start: 20060718, end: 20060814
  2. PLENDIL [Concomitant]
     Indication: HYPERTENSION
     Route: 048
     Dates: start: 20030101
  3. BETALOC [Concomitant]
     Indication: HYPERTENSION
     Route: 048
     Dates: start: 20030101
  4. TRADITIONAL CHINESE MEDICINE [Concomitant]
     Indication: CEREBRAL INFARCTION
     Route: 048
     Dates: start: 20060718, end: 20060814

REACTIONS (2)
  - CEREBROVASCULAR ACCIDENT [None]
  - VASCULAR DEMENTIA [None]
